FAERS Safety Report 9305093 (Version 1)
Quarter: 2013Q2

REPORT INFORMATION
  Report Type: Spontaneous
  Country: US (occurrence: None)
  Receive Date: 20130521
  Receipt Date: 20130521
  Transmission Date: 20140414
  Serious: Yes (Other)
  Sender: FDA-Public Use
  Company Number: AUR-APL-2013-04214

PATIENT
  Age: 62 Year
  Sex: Female
  Weight: 85.26 kg

DRUGS (3)
  1. LISINOPRIL (LISINOPRIL) [Suspect]
     Indication: HYPERTENSION
     Dates: start: 2013
  2. ATENOLOL (ATENOLOL) [Suspect]
     Indication: HYPERTENSION
     Dates: end: 201305
  3. CLONIDINE (CLONIDINE) INJECTION [Suspect]
     Indication: HYPERTENSION
     Dosage: 0.5 DF OF 1MG
     Dates: start: 20130506

REACTIONS (2)
  - Drug ineffective [None]
  - Hypertension [None]
